FAERS Safety Report 4379960-3 (Version None)
Quarter: 2004Q2

REPORT INFORMATION
  Report Type: 
  Country: None (occurrence: None)
  Receive Date: 20040614
  Receipt Date: 20040601
  Transmission Date: 20050107
  Serious: Yes (Death, Hospitalization)
  Sender: FDA-Public Use
  Company Number: 04P-167-0262679-00

PATIENT
  Sex: Male

DRUGS (4)
  1. WARFARIN (WARFARIN SODIUM) (WARFARIN SODIUM) [Suspect]
  2. DIGOXIN [Concomitant]
  3. PHENYTOIN [Concomitant]
  4. CEPHALEXIN [Concomitant]

REACTIONS (7)
  - DECREASED APPETITE [None]
  - DRUG INTERACTION [None]
  - FOOD INTERACTION [None]
  - GASTROINTESTINAL HAEMORRHAGE [None]
  - INTERNATIONAL NORMALISED RATIO INCREASED [None]
  - LOWER RESPIRATORY TRACT INFECTION [None]
  - PERICARDIAL HAEMORRHAGE [None]
